FAERS Safety Report 6302764-9 (Version None)
Quarter: 2009Q3

REPORT INFORMATION
  Report Type: 
  Country: None (occurrence: None)
  Receive Date: 20090810
  Receipt Date: 20090730
  Transmission Date: 20100115
  Serious: Yes (Other)
  Sender: FDA-Public Use
  Company Number: JP-ASTRAZENECA-2009SE07014

PATIENT
  Age: 70 Year
  Sex: Female

DRUGS (5)
  1. SEROQUEL [Suspect]
     Indication: DELIRIUM
     Route: 048
     Dates: end: 20090701
  2. SEROQUEL [Suspect]
     Indication: RESTLESSNESS
     Route: 048
     Dates: end: 20090701
  3. MYSLEE [Suspect]
     Indication: INSOMNIA
     Route: 048
  4. DEPAS [Concomitant]
  5. ANTIPARKINSON DRUG [Concomitant]

REACTIONS (1)
  - RESPIRATORY DEPRESSION [None]
